APPROVED DRUG PRODUCT: DIETHYLPROPION HYDROCHLORIDE
Active Ingredient: DIETHYLPROPION HYDROCHLORIDE
Strength: 25MG
Dosage Form/Route: TABLET;ORAL
Application: A088267 | Product #001
Applicant: CHARTWELL RX SCIENCES LLC
Approved: Aug 25, 1983 | RLD: No | RS: No | Type: DISCN